FAERS Safety Report 8461879-X (Version None)
Quarter: 2012Q2

REPORT INFORMATION
  Report Type: 
  Country: None (occurrence: None)
  Receive Date: 20120625
  Receipt Date: 20120615
  Transmission Date: 20120825
  Serious: Yes (Other)
  Sender: FDA-Public Use
  Company Number: JP-ASTELLAS-2012JP005497

PATIENT
  Age: 19 Year
  Sex: Female

DRUGS (5)
  1. FLUDARA [Concomitant]
     Route: 065
  2. ANTI-THYMOCYTE GLOBULIN NOS [Concomitant]
     Route: 065
  3. CYTARABINE [Concomitant]
     Route: 065
  4. METHYLPREDNISOLONE [Concomitant]
     Indication: PROPHYLAXIS AGAINST GRAFT VERSUS HOST DISEASE
     Dosage: 1 MG/KG, UNKNOWN/D
     Route: 065
  5. PROGRAF [Suspect]
     Indication: PROPHYLAXIS AGAINST GRAFT VERSUS HOST DISEASE
     Route: 065

REACTIONS (2)
  - DRUG INEFFECTIVE [None]
  - ACUTE GRAFT VERSUS HOST DISEASE [None]
